FAERS Safety Report 16334089 (Version 2)
Quarter: 2019Q2

REPORT INFORMATION
  Report Type: Spontaneous
  Country: US (occurrence: US)
  Receive Date: 20190520
  Receipt Date: 20190530
  Transmission Date: 20190711
  Serious: Yes (Hospitalization, Other)
  Sender: FDA-Public Use
  Company Number: US-CELGENEUS-USA-20190505067

PATIENT
  Age: 74 Year
  Sex: Female

DRUGS (2)
  1. OTEZLA [Suspect]
     Active Substance: APREMILAST
     Indication: PSORIASIS
     Dosage: 60 MILLIGRAM
     Route: 048
     Dates: start: 20181115, end: 201902
  2. OTEZLA [Suspect]
     Active Substance: APREMILAST
     Indication: PSORIASIS
     Dosage: 60 MILLIGRAM
     Route: 048
     Dates: start: 201905

REACTIONS (1)
  - Intervertebral disc disorder [Recovering/Resolving]

NARRATIVE: CASE EVENT DATE: 201902
